FAERS Safety Report 6108702-6 (Version None)
Quarter: 2009Q1

REPORT INFORMATION
  Report Type: 
  Country: None (occurrence: None)
  Receive Date: 20090306
  Receipt Date: 20090219
  Transmission Date: 20090719
  Serious: Yes (Life-Threatening, Other)
  Sender: FDA-Public Use
  Company Number: DSA_33248_2009

PATIENT
  Sex: Female

DRUGS (6)
  1. XENAZINE [Suspect]
     Indication: HUNTINGTON'S CHOREA
     Dosage: (25 MG QD) (12.5 MG QD), (12.5 MG TID)
     Dates: start: 20090101
  2. XENAZINE [Suspect]
     Indication: HUNTINGTON'S CHOREA
     Dosage: (25 MG QD) (12.5 MG QD), (12.5 MG TID)
     Dates: start: 20090115
  3. LEXAPRO [Concomitant]
  4. NAMENDA [Concomitant]
  5. ARICEPT [Concomitant]
  6. KLONOPIN [Concomitant]

REACTIONS (8)
  - ASPHYXIA [None]
  - DIARRHOEA [None]
  - INAPPROPRIATE SCHEDULE OF DRUG ADMINISTRATION [None]
  - INSOMNIA [None]
  - NAUSEA [None]
  - SELF-MEDICATION [None]
  - SUICIDE ATTEMPT [None]
  - TREMOR [None]
